FAERS Safety Report 4891282-0 (Version None)
Quarter: 2006Q1

REPORT INFORMATION
  Report Type: 
  Country: None (occurrence: None)
  Receive Date: 20060125
  Receipt Date: 20060103
  Transmission Date: 20060701
  Serious: Yes (Hospitalization, Other)
  Sender: FDA-Public Use
  Company Number: FI-AMGEN-UK163491

PATIENT
  Sex: Male

DRUGS (20)
  1. ARANESP [Suspect]
     Indication: DIALYSIS
     Route: 065
     Dates: start: 20040615, end: 20051114
  2. MULTIVITAMINS WITH MINERALS [Concomitant]
     Route: 048
  3. SANDIMMUNE [Concomitant]
     Route: 065
     Dates: start: 20050501
  4. CELLCEPT [Concomitant]
     Route: 065
     Dates: start: 20050501, end: 20050913
  5. PROGRAF [Concomitant]
     Route: 065
  6. CORTISONE ACETATE TAB [Concomitant]
     Route: 065
  7. COTRIM [Concomitant]
     Route: 065
  8. VALCYTET [Concomitant]
     Route: 065
  9. MEDROL [Concomitant]
     Route: 065
  10. RIFAMPICIN [Concomitant]
     Route: 065
     Dates: start: 20050322
  11. CLOXACILLIN [Concomitant]
     Route: 065
  12. CALCICHEW [Concomitant]
     Route: 065
  13. ETALPHA [Concomitant]
     Route: 065
  14. METOPROLOL SUCCINATE [Concomitant]
     Route: 065
  15. PLENDIL [Concomitant]
     Route: 065
  16. DUREKAL [Concomitant]
     Route: 065
  17. BENZOATE [Concomitant]
     Route: 048
  18. NEXIUM [Concomitant]
     Route: 065
  19. LIPITOR [Concomitant]
     Route: 065
  20. EMGESAN [Concomitant]
     Route: 065

REACTIONS (3)
  - APLASIA PURE RED CELL [None]
  - GASTROENTERITIS [None]
  - STAPHYLOCOCCAL INFECTION [None]
